FAERS Safety Report 9210340 (Version 1)
Quarter: 2013Q2

REPORT INFORMATION
  Report Type: Report from Study
  Country: GB (occurrence: GB)
  Receive Date: 20130404
  Receipt Date: 20130404
  Transmission Date: 20140414
  Serious: Yes (Death, Other)
  Sender: FDA-Public Use
  Company Number: GB-ROCHE-758513

PATIENT
  Age: 68 Year
  Sex: Female
  Weight: 62 kg

DRUGS (3)
  1. RITUXIMAB [Suspect]
     Indication: RHEUMATOID ARTHRITIS
     Dosage: LAST DOSE TAKEN PRIOR TO SAE ON 12/NOV/2008
     Route: 042
  2. METHOTREXATE [Concomitant]
     Route: 065
  3. ALENDRONIC ACID [Concomitant]
     Indication: OSTEOPOROSIS
     Route: 065

REACTIONS (5)
  - Bronchopneumonia [Fatal]
  - Cerebrovascular accident [Fatal]
  - Diabetic neuropathy [Fatal]
  - Femoral neck fracture [Unknown]
  - Lower respiratory tract infection [Unknown]
